FAERS Safety Report 5035833-4 (Version None)
Quarter: 2006Q2

REPORT INFORMATION
  Report Type: 
  Country: None (occurrence: None)
  Receive Date: 20060526
  Receipt Date: 20060317
  Transmission Date: 20061013
  Serious: No
  Sender: FDA-Public Use
  Company Number: FABR-11373

PATIENT
  Age: 46 Year
  Sex: Male
  Weight: 65 kg

DRUGS (6)
  1. FABRAZYME [Suspect]
     Indication: FABRY'S DISEASE
     Dosage: SEE IMAGE
     Route: 042
     Dates: start: 19990527, end: 19991011
  2. FABRAZYME [Suspect]
     Indication: FABRY'S DISEASE
     Dosage: SEE IMAGE
     Route: 042
     Dates: start: 20000121, end: 20040907
  3. FABRAZYME [Suspect]
     Indication: FABRY'S DISEASE
     Dosage: SEE IMAGE
     Route: 042
     Dates: end: 20060116
  4. FABRAZYME [Suspect]
     Indication: FABRY'S DISEASE
     Dosage: SEE IMAGE
     Route: 042
     Dates: start: 20060101
  5. IBUPROFEN [Concomitant]
  6. CLARITIN [Concomitant]

REACTIONS (2)
  - PRURITUS [None]
  - URTICARIA [None]
